FAERS Safety Report 5388884-4 (Version None)
Quarter: 2007Q3

REPORT INFORMATION
  Report Type: 
  Country: None (occurrence: None)
  Receive Date: 20070717
  Receipt Date: 20070706
  Transmission Date: 20080115
  Serious: Yes (Hospitalization, Other)
  Sender: FDA-Public Use
  Company Number: BE-ABBOTT-07P-013-0372937-00

PATIENT
  Sex: Female

DRUGS (9)
  1. NORVIR [Suspect]
     Indication: HIV INFECTION
     Dates: start: 20070111
  2. NORVIR [Suspect]
     Dates: start: 20060303, end: 20061111
  3. FOSAMPRENAVIR [Concomitant]
     Indication: HIV INFECTION
     Dates: start: 20060303, end: 20061111
  4. FOSAMPRENAVIR [Concomitant]
     Dates: start: 20070111
  5. TENOFOVIR [Concomitant]
     Indication: HIV INFECTION
     Dates: start: 20060303, end: 20061111
  6. TENOFOVIR [Concomitant]
     Dates: start: 20070111
  7. ABACAVIR SULFATE W/LAMIVUDINE [Concomitant]
     Indication: HIV INFECTION
     Dates: start: 20060303, end: 20061111
  8. ABACAVIR SULFATE W/LAMIVUDINE [Concomitant]
     Dates: start: 20070111
  9. SPIRONOLACTONE [Concomitant]
     Indication: HYPERTENSION
     Dates: start: 20051013

REACTIONS (5)
  - ALCOHOL POISONING [None]
  - ALCOHOLISM [None]
  - COMA [None]
  - CONFUSIONAL STATE [None]
  - DRUG TOXICITY [None]
